FAERS Safety Report 15206490 (Version 1)
Quarter: 2018Q3

REPORT INFORMATION
  Report Type: Spontaneous
  Country: ES (occurrence: ES)
  Receive Date: 20180727
  Receipt Date: 20180727
  Transmission Date: 20181010
  Serious: Yes (Hospitalization)
  Sender: FDA-Public Use
  Company Number: ES-SUN PHARMACEUTICAL INDUSTRIES LTD-2018RR-179734

PATIENT
  Age: 67 Year
  Sex: Female

DRUGS (6)
  1. CELLCEPT [Suspect]
     Active Substance: MYCOPHENOLATE MOFETIL\MYCOPHENOLATE MOFETIL HYDROCHLORIDE
     Indication: RENAL TRANSPLANT
     Dosage: || DOSIS UNIDAD FRECUENCIA: 1.5 G?GRAMOS || UNIDAD DE FRECUENCIA: 1 DIA
     Route: 048
     Dates: start: 201203
  2. METFORMINA [Concomitant]
     Active Substance: METFORMIN HYDROCHLORIDE
     Indication: DIABETES MELLITUS
     Dosage: 1.7 G, DAILY
     Route: 048
     Dates: start: 20150811
  3. VALSARTAN/HYDROCHLOROTHIAZIDE [Suspect]
     Active Substance: HYDROCHLOROTHIAZIDE\VALSARTAN
     Indication: ESSENTIAL HYPERTENSION
     Dosage: 80MG/12.5MG
     Route: 048
     Dates: start: 201301, end: 20160314
  4. PREDNISONA [Concomitant]
     Active Substance: PREDNISONE
     Indication: CONTINUOUS HAEMODIAFILTRATION
     Dosage: || DOSIS UNIDAD FRECUENCIA: 5 MG?MILIGRAMOS || UNIDAD DE FRECUENCIA: 1 DIA ()
     Route: 048
     Dates: start: 201203
  5. ADVAGRAF [Suspect]
     Active Substance: TACROLIMUS
     Indication: RENAL TRANSPLANT
     Dosage: || DOSIS UNIDAD FRECUENCIA: 3.5 MG?MILIGRAMOS || UNIDAD DE FRECUENCIA: 1 DIA
     Route: 048
     Dates: start: 201203
  6. CRESTOR [Concomitant]
     Active Substance: ROSUVASTATIN CALCIUM
     Indication: DYSLIPIDAEMIA
     Dosage: || DOSIS UNIDAD FRECUENCIA: 20 MG?MILIGRAMOS || UNIDAD DE FRECUENCIA: 1 DIA
     Route: 048
     Dates: start: 20120405

REACTIONS (1)
  - Acute kidney injury [Recovered/Resolved]

NARRATIVE: CASE EVENT DATE: 20160229
